FAERS Safety Report 4423926-1 (Version None)
Quarter: 2004Q3

REPORT INFORMATION
  Report Type: 
  Country: None (occurrence: None)
  Receive Date: 20040805
  Receipt Date: 20040722
  Transmission Date: 20050211
  Serious: Yes (Other)
  Sender: FDA-Public Use
  Company Number: 2004225247GB

PATIENT
  Sex: Female

DRUGS (2)
  1. SOLU-CORTEF [Suspect]
     Indication: BRAIN OEDEMA
     Dosage: TID, IV
     Route: 042
  2. DEXAMETHASONE [Concomitant]

REACTIONS (1)
  - CARCINOMA [None]
